FAERS Safety Report 14138626 (Version 2)
Quarter: 2018Q4

REPORT INFORMATION
  Report Type: Spontaneous
  Country: IT (occurrence: IT)
  Receive Date: 20171027
  Receipt Date: 20181126
  Transmission Date: 20190204
  Serious: Yes (Other)
  Sender: FDA-Public Use
  Company Number: IT-SHIRE-IT201726599

PATIENT

DRUGS (1)
  1. HUMAN NORMAL IMMUNOGLOBULIN [Suspect]
     Active Substance: HUMAN IMMUNOGLOBULIN G
     Indication: HYPOGAMMAGLOBULINAEMIA
     Dosage: UNK UNK, 1X A MONTH
     Route: 042

REACTIONS (1)
  - Drug ineffective [Unknown]
